FAERS Safety Report 20809882 (Version 3)
Quarter: 2022Q3

REPORT INFORMATION
  Report Type: Report from Study
  Country: US (occurrence: US)
  Receive Date: 20220510
  Receipt Date: 20220804
  Transmission Date: 20221027
  Serious: No
  Sender: FDA-Public Use
  Company Number: US-NOVARTISTESTPH-NVSC2022US107358

PATIENT
  Sex: Female

DRUGS (1)
  1. TASIGNA [Suspect]
     Active Substance: NILOTINIB
     Indication: Product used for unknown indication
     Dosage: UNK
     Route: 048

REACTIONS (7)
  - Laboratory test abnormal [Unknown]
  - Rash pruritic [Unknown]
  - Abdominal pain upper [Unknown]
  - Back pain [Unknown]
  - Constipation [Unknown]
  - Flatulence [Unknown]
  - Dizziness [Unknown]
